FAERS Safety Report 4571509-5 (Version None)
Quarter: 2005Q1

REPORT INFORMATION
  Report Type: 
  Country: None (occurrence: None)
  Receive Date: 20050203
  Receipt Date: 20050203
  Transmission Date: 20050727
  Serious: Yes (Other)
  Sender: FDA-Public Use
  Company Number: None

PATIENT
  Sex: Female
  Weight: 44.9061 kg

DRUGS (1)
  1. HYDROXYUREA [Suspect]
     Indication: SICKLE CELL ANAEMIA
     Dosage: 500 MG TWO PO QD
     Route: 048

REACTIONS (3)
  - DRUG INEFFECTIVE [None]
  - FOETAL HAEMOGLOBIN INCREASED [None]
  - PHARMACEUTICAL PRODUCT COMPLAINT [None]
